FAERS Safety Report 6659728-5 (Version None)
Quarter: 2010Q1

REPORT INFORMATION
  Report Type: 
  Country: None (occurrence: None)
  Receive Date: 20100326
  Receipt Date: 20100316
  Transmission Date: 20100710
  Serious: Yes (Death, Other)
  Sender: FDA-Public Use
  Company Number: 2007-01874

PATIENT
  Age: 48 Year
  Sex: Female
  Weight: 60 kg

DRUGS (46)
  1. VELCADE [Suspect]
     Indication: MULTIPLE MYELOMA
     Dosage: 1.30 MG/M2, INTRAVENOUS
     Route: 042
     Dates: start: 20070416, end: 20070514
  2. DECADRON [Suspect]
     Indication: MULTIPLE MYELOMA
     Dosage: 4.00 MG, ORAL; 16.00 MG, ORAL; 20.00 MG, ORAL
     Route: 048
     Dates: start: 20070416, end: 20070514
  3. DECADRON [Suspect]
     Indication: MULTIPLE MYELOMA
     Dosage: 4.00 MG, ORAL; 16.00 MG, ORAL; 20.00 MG, ORAL
     Route: 048
     Dates: start: 20070514, end: 20070514
  4. DECADRON [Suspect]
     Indication: MULTIPLE MYELOMA
     Dosage: 4.00 MG, ORAL; 16.00 MG, ORAL; 20.00 MG, ORAL
     Route: 048
     Dates: start: 20070515, end: 20070515
  5. SUCRALFATE [Concomitant]
  6. FLUCONAZOLE [Concomitant]
  7. ZOVIRAX [Concomitant]
  8. MAGNESIUM OXIDE (MAGNESIUM OXIDE) [Concomitant]
  9. LENDORM [Concomitant]
  10. LAXOBERON (SODIUM PICOSULFATE) [Concomitant]
  11. ROHYPNOL (FLUNITRAZEPAM) [Concomitant]
  12. MILTAX (KETOPROFEN) [Concomitant]
  13. COTRIM [Concomitant]
  14. MS ONSHIPU [Concomitant]
  15. ACETAMINOPHEN [Concomitant]
  16. DEPAS (ETIZOLAM) [Concomitant]
  17. PENTAZOCINE LACTATE [Concomitant]
  18. ATARAX [Concomitant]
  19. LECICARBON SODIUM BICARBONATE, LECITHIN SODIUM PHOSPHATE MONOBASIC (AN [Concomitant]
  20. MAXIPIME [Concomitant]
  21. BIKLIN (AMIKACIN SULFATE) [Concomitant]
  22. RED BLOOD CELLS [Concomitant]
  23. PLATELETS [Concomitant]
  24. HYDROPHILIC OINTMENT [Concomitant]
  25. ZOMETA [Concomitant]
  26. CHLOR-TRIMETON (CHLORPHENARAMINE MALEATE) [Concomitant]
  27. GLYCEROL 2.6% [Concomitant]
  28. PRIMPERAN TAB [Concomitant]
  29. NOVAMIN (PROCHLORPERAZINE) [Concomitant]
  30. LACTEC (SODIUM LACTATE, POTASSIUM CHLORIDE, CALCIUM CHLORIDE, ANHYDROU [Concomitant]
  31. SOLDEM 3A (SODIUM LACTATE, POTASSIUM CHLORIDE, CARBOHYDRATES NOS, SODI [Concomitant]
  32. PANTOL (DEXPANTHENOL) [Concomitant]
  33. SANDOSTATIN [Concomitant]
  34. TOBRAMYCIN SULFATE [Concomitant]
  35. CEFTAZIDIME [Concomitant]
  36. CHLORPROMAZINE HCL [Concomitant]
  37. KAYTWO N (MENATETRENONE) [Concomitant]
  38. NEOLAMIN MULTI V (VITAMINS NOS) [Concomitant]
  39. PN TWIN (AMINO ACIDS NOS, CARBOHYDRATES NOS, ELECTROLYTES NOS) [Concomitant]
  40. ELEMENIC (MINERALS NOS) [Concomitant]
  41. XYLOCAINE [Concomitant]
  42. SERENACE (HALOPERIDOL) [Concomitant]
  43. SOLDEM 1 (GLUCOSE, SODIUM LACTATE, SODIUM CHLORIDE) [Concomitant]
  44. VITAMIN PREPARATION COMPOUND (VITAMINS NOS) [Concomitant]
  45. FENTANYL CITRATE [Concomitant]
  46. RESTAMIN (DIPHENHYDRAMINE) [Concomitant]

REACTIONS (35)
  - ARTHRALGIA [None]
  - ASCITES [None]
  - ASPARTATE AMINOTRANSFERASE INCREASED [None]
  - ATELECTASIS [None]
  - BLOOD LACTATE DEHYDROGENASE INCREASED [None]
  - BLOOD PHOSPHORUS INCREASED [None]
  - BLOOD SODIUM DECREASED [None]
  - CARDIAC FAILURE [None]
  - DISEASE PROGRESSION [None]
  - DYSARTHRIA [None]
  - DYSPHONIA [None]
  - ERYTHEMA [None]
  - GAMMA-GLUTAMYLTRANSFERASE INCREASED [None]
  - HAEMOGLOBIN DECREASED [None]
  - HEADACHE [None]
  - HERPES SIMPLEX [None]
  - HYPERURICAEMIA [None]
  - HYPOAESTHESIA ORAL [None]
  - HYPOKALAEMIA [None]
  - HYPONATRAEMIA [None]
  - HYPOPHOSPHATAEMIA [None]
  - ILEUS [None]
  - LYMPHOPENIA [None]
  - NERVE INJURY [None]
  - PETECHIAE [None]
  - PLATELET COUNT DECREASED [None]
  - PLEURAL EFFUSION [None]
  - PNEUMONIA [None]
  - PULMONARY CONGESTION [None]
  - PULMONARY OEDEMA [None]
  - PYREXIA [None]
  - RESPIRATORY FAILURE [None]
  - TUMOUR LYSIS SYNDROME [None]
  - VOMITING [None]
  - WHITE BLOOD CELL COUNT DECREASED [None]
